FAERS Safety Report 4351646-0 (Version None)
Quarter: 2004Q2

REPORT INFORMATION
  Report Type: 
  Country: None (occurrence: None)
  Receive Date: 20040429
  Receipt Date: 20040329
  Transmission Date: 20050107
  Serious: No
  Sender: FDA-Public Use
  Company Number: 2004-114398-NL

PATIENT
  Age: 28 Year
  Sex: Female
  Weight: 63.6 kg

DRUGS (5)
  1. NUVARING [Suspect]
     Indication: CONTRACEPTION
     Dosage: DF DAILY VAGINAL
     Route: 067
     Dates: start: 20040315
  2. BIAXIN [Concomitant]
  3. VITAMIN C [Concomitant]
  4. MULTI-VITAMINS [Concomitant]
  5. SYNTHROID [Concomitant]

REACTIONS (3)
  - ABDOMINAL PAIN LOWER [None]
  - FEELING COLD [None]
  - NIGHT SWEATS [None]
